FAERS Safety Report 6341806-1 (Version None)
Quarter: 2009Q3

REPORT INFORMATION
  Report Type: 
  Country: None (occurrence: None)
  Receive Date: 20090904
  Receipt Date: 20090902
  Transmission Date: 20100115
  Serious: Yes (Hospitalization)
  Sender: FDA-Public Use
  Company Number: US-GENENTECH-248148

PATIENT
  Age: 59 Year
  Sex: Female
  Weight: 90.4 kg

DRUGS (8)
  1. BEVACIZUMAB [Suspect]
     Indication: BREAST CANCER
     Dosage: 15 MG/KG, UNK
     Route: 042
     Dates: start: 20070830, end: 20070830
  2. DOCETAXEL [Suspect]
     Indication: BREAST CANCER
     Dosage: 45 MG/M2, UNK
     Route: 042
     Dates: start: 20070830, end: 20070830
  3. CYCLOPHOSPHAMIDE [Suspect]
     Indication: BREAST CANCER
     Dosage: 500 MG/M2, UNK
     Route: 042
     Dates: start: 20070830, end: 20070830
  4. DOXORUBICIN HCL [Suspect]
     Indication: BREAST CANCER
     Dosage: 50 MG/M2, UNK
     Route: 042
     Dates: start: 20070830, end: 20070830
  5. LEXAPRO [Concomitant]
     Indication: DRUG USE FOR UNKNOWN INDICATION
  6. CITRACAL [Concomitant]
     Indication: DRUG USE FOR UNKNOWN INDICATION
  7. MULTI-VITAMIN [Concomitant]
     Indication: DRUG USE FOR UNKNOWN INDICATION
  8. ASCORBIC ACID [Concomitant]
     Indication: DRUG USE FOR UNKNOWN INDICATION

REACTIONS (3)
  - CAECITIS [None]
  - CHOLELITHIASIS [None]
  - SEPTIC SHOCK [None]
